FAERS Safety Report 23369657 (Version 1)
Quarter: 2024Q1

REPORT INFORMATION
  Report Type: Spontaneous
  Country: US (occurrence: None)
  Receive Date: 20240104
  Receipt Date: 20240104
  Transmission Date: 20240410
  Serious: No
  Sender: FDA-Public Use
  Company Number: None

PATIENT
  Age: 79 Year
  Sex: Male
  Weight: 80.7 kg

DRUGS (1)
  1. IMBRUVICA [Suspect]
     Active Substance: IBRUTINIB
     Indication: Chronic lymphocytic leukaemia
     Dosage: FREQUENCY : DAILY;?
     Route: 048
     Dates: start: 20201001

REACTIONS (4)
  - Squamous cell carcinoma of skin [None]
  - Malignant neoplasm progression [None]
  - Fatigue [None]
  - Immune-mediated adverse reaction [None]

NARRATIVE: CASE EVENT DATE: 20230430
